FAERS Safety Report 8232938-1 (Version None)
Quarter: 2012Q1

REPORT INFORMATION
  Report Type: 
  Country: None (occurrence: None)
  Receive Date: 20120325
  Receipt Date: 20120312
  Transmission Date: 20120608
  Serious: Yes (Disabling, Other)
  Sender: FDA-Public Use
  Company Number: US-MYLANLABS-2012S1006123

PATIENT
  Age: 14 Year
  Sex: Male
  Weight: 47.17 kg

DRUGS (24)
  1. ENALAPRIL MALEATE [Concomitant]
  2. NASACORT [Concomitant]
  3. ZOFRAN [Concomitant]
  4. CEFDINIR [Concomitant]
  5. LACTULOSE [Concomitant]
  6. BIAXIN [Concomitant]
  7. SINGULAIR [Concomitant]
  8. DIGOXIN [Suspect]
     Indication: HEART DISEASE CONGENITAL
     Route: 048
     Dates: start: 20011028, end: 20080710
  9. PULMICORT [Concomitant]
  10. HYDROXYZINE [Concomitant]
  11. DURATAN [Concomitant]
  12. ADVAIR DISKUS 100/50 [Concomitant]
  13. AZITHROMYCIN [Concomitant]
  14. FLUCONAZOLE [Concomitant]
  15. PREDNISOLONE [Concomitant]
  16. CARBOFED [Concomitant]
  17. CEFTIN [Concomitant]
  18. OMICEF [Concomitant]
  19. ALBUTEROL [Concomitant]
  20. CEPHALEXIN [Concomitant]
  21. FLOVENT [Concomitant]
  22. XOPENEX [Concomitant]
  23. CEFACLOR [Concomitant]
  24. AMOXICILLIN [Concomitant]

REACTIONS (18)
  - HALLUCINATION [None]
  - CHEST PAIN [None]
  - MENTAL IMPAIRMENT [None]
  - HEART RATE IRREGULAR [None]
  - AMNESIA [None]
  - TREMOR [None]
  - HEADACHE [None]
  - MENTAL DISABILITY [None]
  - NERVOUSNESS [None]
  - ILL-DEFINED DISORDER [None]
  - ECONOMIC PROBLEM [None]
  - NAUSEA [None]
  - HYPOTENSION [None]
  - EMOTIONAL DISORDER [None]
  - MENTAL DISORDER [None]
  - CARDIAC DISORDER [None]
  - CONFUSIONAL STATE [None]
  - OFFICE VISIT [None]
